FAERS Safety Report 5605917-8 (Version None)
Quarter: 2008Q1

REPORT INFORMATION
  Report Type: 
  Country: None (occurrence: None)
  Receive Date: 20080124
  Receipt Date: 20080124
  Transmission Date: 20080703
  Serious: Yes (Other)
  Sender: FDA-Public Use
  Company Number: None

PATIENT
  Age: 37 Year
  Sex: Male
  Weight: 100.6985 kg

DRUGS (1)
  1. ALLI [Suspect]
     Indication: OVERWEIGHT
     Dosage: 1 TABLET 3 TIMES DAILY PO
     Route: 048
     Dates: start: 20080113, end: 20080122

REACTIONS (1)
  - CONSTIPATION [None]
